FAERS Safety Report 9476980 (Version 3)
Quarter: 2013Q3

REPORT INFORMATION
  Report Type: Report from Study
  Country: CN (occurrence: CN)
  Receive Date: 20130826
  Receipt Date: 20130912
  Transmission Date: 20140515
  Serious: Yes (Hospitalization)
  Sender: FDA-Public Use
  Company Number: CN-BAXTER-2013BAX007384

PATIENT
  Age: 54 Year
  Sex: Female
  Weight: 66.5 kg

DRUGS (8)
  1. PERITONEAL DIALYSIS SOLUTION (LACTATE- G 1.5%) [Suspect]
     Indication: PERITONEAL DIALYSIS
     Route: 033
  2. INSULINUM [Concomitant]
     Indication: DIABETES MELLITUS
     Dates: start: 20120216
  3. NIFEREX                            /00198301/ [Concomitant]
     Indication: NEPHROGENIC ANAEMIA
     Route: 048
     Dates: start: 20120216
  4. FOLATE [Concomitant]
     Indication: NEPHROGENIC ANAEMIA
     Route: 048
     Dates: start: 20120216
  5. EPO [Concomitant]
     Indication: NEPHROGENIC ANAEMIA
     Dates: start: 20120216
  6. DIOVAN [Concomitant]
     Indication: RENAL HYPERTENSION
     Route: 048
     Dates: start: 20120216
  7. LOTENSIN                           /00498401/ [Concomitant]
     Indication: RENAL HYPERTENSION
     Route: 048
     Dates: start: 20120216
  8. PROCARDIN [Concomitant]
     Indication: RENAL HYPERTENSION
     Route: 048

REACTIONS (1)
  - Cerebral infarction [Not Recovered/Not Resolved]
